FAERS Safety Report 15314784 (Version 1)
Quarter: 2018Q3

REPORT INFORMATION
  Report Type: Spontaneous
  Country: US (occurrence: US)
  Receive Date: 20180815
  Receipt Date: 20180815
  Transmission Date: 20181010
  Serious: Yes (Hospitalization)
  Sender: FDA-Public Use
  Company Number: None

PATIENT
  Age: 12 Year
  Sex: Male
  Weight: 40.95 kg

DRUGS (4)
  1. OXYBUTYNIN. [Concomitant]
     Active Substance: OXYBUTYNIN CHLORIDE
  2. DESMOPRESSIN [Concomitant]
     Active Substance: DESMOPRESSIN
  3. POLYETHYLENE GLYCOL 3350 NF POWDER 255GM [Suspect]
     Active Substance: POLYETHYLENE GLYCOL 3350
     Indication: CONSTIPATION
     Dosage: ?          QUANTITY:0.5 CAPFUL;?
     Route: 048
     Dates: start: 20180104, end: 20180726
  4. ZYRTEC [Concomitant]
     Active Substance: CETIRIZINE HYDROCHLORIDE

REACTIONS (4)
  - Feeding disorder [None]
  - Vomiting [None]
  - Pain [None]
  - Obstruction [None]

NARRATIVE: CASE EVENT DATE: 20180727
